FAERS Safety Report 5361000-0 (Version None)
Quarter: 2007Q2

REPORT INFORMATION
  Report Type: 
  Country: None (occurrence: None)
  Receive Date: 20070618
  Receipt Date: 20070606
  Transmission Date: 20071010
  Serious: Yes (Other)
  Sender: FDA-Public Use
  Company Number: US-PFIZER INC-2007046872

PATIENT
  Sex: Female

DRUGS (2)
  1. LYRICA [Suspect]
     Indication: NEUROPATHY PERIPHERAL
  2. ACE INHIBITOR NOS [Concomitant]

REACTIONS (3)
  - BALANCE DISORDER [None]
  - HYPERTENSION [None]
  - HYPOGLYCAEMIA [None]
